FAERS Safety Report 23737912 (Version 2)
Quarter: 2024Q2

REPORT INFORMATION
  Report Type: Spontaneous
  Country: DE (occurrence: None)
  Receive Date: 20240412
  Receipt Date: 20240424
  Transmission Date: 20240716
  Serious: Yes (Hospitalization)
  Sender: FDA-Public Use
  Company Number: 2024A082495

PATIENT
  Age: 48 Year
  Sex: Male
  Weight: 85 kg

DRUGS (2)
  1. DAPAGLIFLOZIN [Suspect]
     Active Substance: DAPAGLIFLOZIN
     Indication: Proteinuria
     Dosage: 10.0MG UNKNOWN
     Route: 048
     Dates: start: 20230202
  2. RAMIPRIL [Concomitant]
     Active Substance: RAMIPRIL

REACTIONS (2)
  - Peripheral artery thrombosis [Recovered/Resolved]
  - Vascular occlusion [Recovered/Resolved]

NARRATIVE: CASE EVENT DATE: 20230707
